FAERS Safety Report 4954476-1 (Version None)
Quarter: 2006Q1

REPORT INFORMATION
  Report Type: 
  Country: None (occurrence: None)
  Receive Date: 20060322
  Receipt Date: 20060308
  Transmission Date: 20060701
  Serious: Yes (Other)
  Sender: FDA-Public Use
  Company Number: 2006035918

PATIENT
  Age: 45 Year
  Sex: Male

DRUGS (8)
  1. NEURONTIN [Suspect]
     Indication: PAIN
  2. LYRICA [Suspect]
     Indication: NEURALGIA
     Dosage: 225 MG (75 MG, 3 IN 1 D), ORAL
     Route: 048
     Dates: start: 20051222
  3. DIPYRONE TAB [Concomitant]
  4. TRAMADOL (TRAAMADOL) [Concomitant]
  5. IBUPROFEN [Concomitant]
  6. ACETAMINOPHEN [Concomitant]
  7. DIAZEPAM [Concomitant]
  8. OMEPRAZOLE [Concomitant]

REACTIONS (5)
  - ANGIOPATHY [None]
  - INFLAMMATION [None]
  - OEDEMA PERIPHERAL [None]
  - PAIN [None]
  - SURGICAL PROCEDURE REPEATED [None]
